FAERS Safety Report 23129765 (Version 1)
Quarter: 2023Q4

REPORT INFORMATION
  Report Type: Spontaneous
  Country: JP (occurrence: JP)
  Receive Date: 20231031
  Receipt Date: 20231031
  Transmission Date: 20240109
  Serious: Yes (Other)
  Sender: FDA-Public Use
  Company Number: JP-SA-2023SA330208

PATIENT
  Age: 47 Year
  Sex: Female

DRUGS (1)
  1. DUPILUMAB [Suspect]
     Active Substance: DUPILUMAB
     Indication: Dermatitis atopic
     Dosage: UNK

REACTIONS (5)
  - Chronic cutaneous lupus erythematosus [Recovering/Resolving]
  - Erythema annulare [Recovering/Resolving]
  - Arthropod infestation [Unknown]
  - Dermatitis atopic [Recovering/Resolving]
  - Rebound effect [Recovering/Resolving]
